FAERS Safety Report 5363843-6 (Version None)
Quarter: 2007Q2

REPORT INFORMATION
  Report Type: 
  Country: None (occurrence: None)
  Receive Date: 20070620
  Receipt Date: 20070614
  Transmission Date: 20071010
  Serious: Yes (Death, Other)
  Sender: FDA-Public Use
  Company Number: PHNU2007DE01691

PATIENT
  Sex: Male
  Weight: 82 kg

DRUGS (1)
  1. TEGRETOL [Suspect]
     Indication: GRAND MAL CONVULSION
     Dates: start: 20070301

REACTIONS (47)
  - ADRENAL ADENOMA [None]
  - ARTERIOSCLEROSIS [None]
  - ARTERIOSCLEROSIS CORONARY ARTERY [None]
  - ASCITES [None]
  - ATELECTASIS [None]
  - BILE DUCT STONE [None]
  - BIOPSY ADRENAL GLAND ABNORMAL [None]
  - BIOPSY KIDNEY ABNORMAL [None]
  - BIOPSY LIVER ABNORMAL [None]
  - BIOPSY PANCREAS ABNORMAL [None]
  - BIOPSY SPLEEN ABNORMAL [None]
  - CHOLECYSTITIS [None]
  - CHOLELITHIASIS [None]
  - CHOLELITHOTOMY [None]
  - CHOLESTASIS [None]
  - EMPHYSEMA [None]
  - FAT NECROSIS [None]
  - HAEMATURIA [None]
  - HEPATIC CONGESTION [None]
  - HEPATIC FAILURE [None]
  - HEPATOMEGALY [None]
  - HYPERAEMIA [None]
  - HYPOGAMMAGLOBULINAEMIA [None]
  - JAUNDICE [None]
  - KERATITIS HERPETIC [None]
  - LUNG DISORDER [None]
  - MUCOSAL ULCERATION [None]
  - MULTI-ORGAN FAILURE [None]
  - MYOCARDIAL FIBROSIS [None]
  - NEPHRITIS INTERSTITIAL [None]
  - NEPHROSCLEROSIS [None]
  - OCULAR ICTERUS [None]
  - OEDEMA PERIPHERAL [None]
  - OESOPHAGEAL ULCER [None]
  - PANCREATITIS [None]
  - PNEUMONIA [None]
  - PULMONARY CONGESTION [None]
  - REFLUX OESOPHAGITIS [None]
  - RENAL DISORDER [None]
  - RENAL FAILURE [None]
  - SPLEEN CONGESTION [None]
  - SPLENOMEGALY [None]
  - TRACHEOBRONCHITIS [None]
  - TRACHEOSTOMY [None]
  - VANISHING BILE DUCT SYNDROME [None]
  - VENTRICULAR HYPERTROPHY [None]
  - VISCERAL CONGESTION [None]
